FAERS Safety Report 13432301 (Version 1)
Quarter: 2017Q2

REPORT INFORMATION
  Report Type: Spontaneous
  Country: US (occurrence: US)
  Receive Date: 20170412
  Receipt Date: 20170412
  Transmission Date: 20170830
  Serious: Yes (Life-Threatening, Hospitalization)
  Sender: FDA-Public Use
  Company Number: US-JNJFOC-20170303146

PATIENT
  Age: 88 Year
  Sex: Male

DRUGS (7)
  1. XARELTO [Suspect]
     Active Substance: RIVAROXABAN
     Indication: THROMBOSIS PROPHYLAXIS
     Dosage: IN DOSES OF 15 MG AND 20 MG
     Route: 048
     Dates: start: 20160329, end: 201604
  2. XARELTO [Suspect]
     Active Substance: RIVAROXABAN
     Indication: THROMBOSIS PROPHYLAXIS
     Dosage: IN DOSES OF 15 MG AND 20 MG
     Route: 048
     Dates: start: 20160311, end: 201603
  3. ASPIRIN. [Suspect]
     Active Substance: ASPIRIN
     Indication: PRODUCT USED FOR UNKNOWN INDICATION
     Route: 048
     Dates: end: 201603
  4. XARELTO [Suspect]
     Active Substance: RIVAROXABAN
     Indication: CEREBROVASCULAR ACCIDENT PROPHYLAXIS
     Dosage: IN DOSES OF 15 MG AND 20 MG
     Route: 048
     Dates: start: 20160329, end: 201604
  5. XARELTO [Suspect]
     Active Substance: RIVAROXABAN
     Indication: ATRIAL FIBRILLATION
     Dosage: IN DOSES OF 15 MG AND 20 MG
     Route: 048
     Dates: start: 20160329, end: 201604
  6. XARELTO [Suspect]
     Active Substance: RIVAROXABAN
     Indication: CEREBROVASCULAR ACCIDENT PROPHYLAXIS
     Dosage: IN DOSES OF 15 MG AND 20 MG
     Route: 048
     Dates: start: 20160311, end: 201603
  7. XARELTO [Suspect]
     Active Substance: RIVAROXABAN
     Indication: ATRIAL FIBRILLATION
     Dosage: IN DOSES OF 15 MG AND 20 MG
     Route: 048
     Dates: start: 20160311, end: 201603

REACTIONS (3)
  - Inappropriate schedule of drug administration [Unknown]
  - Gastrointestinal haemorrhage [Recovering/Resolving]
  - Off label use [Unknown]

NARRATIVE: CASE EVENT DATE: 201603
